FAERS Safety Report 5383236-5 (Version None)
Quarter: 2007Q3

REPORT INFORMATION
  Report Type: 
  Country: None (occurrence: None)
  Receive Date: 20070705
  Receipt Date: 20070622
  Transmission Date: 20080115
  Serious: Yes (Death)
  Sender: FDA-Public Use
  Company Number: 2005JP001827

PATIENT
  Age: 58 Year
  Sex: Male
  Weight: 67 kg

DRUGS (6)
  1. PROGRAF [Suspect]
     Indication: BONE MARROW TRANSPLANT
     Dosage: SEE IMAGE
     Route: 048
     Dates: start: 20040311, end: 20041024
  2. PREDNISOLONE [Suspect]
     Indication: BONE MARROW TRANSPLANT
     Dosage: 10 MG, UID/QD, ORAL
     Route: 048
     Dates: start: 20031023, end: 20041019
  3. MUCOSTA (REBAMIPIDE) TABLET [Concomitant]
  4. LAC B (LACTOBACILLUS BIFIDUS, LYOPHILIZED) GRANULE [Concomitant]
  5. DEPAS (ETIZOLAM) TABLET [Concomitant]
  6. DIFLUCAN [Concomitant]

REACTIONS (8)
  - COMA HEPATIC [None]
  - COMPLICATIONS OF TRANSPLANT SURGERY [None]
  - DIALYSIS [None]
  - GRAFT VERSUS HOST DISEASE [None]
  - HEPATITIS FULMINANT [None]
  - PYREXIA [None]
  - RENAL IMPAIRMENT [None]
  - TREMOR [None]
